FAERS Safety Report 12442646 (Version 1)
Quarter: 2016Q2

REPORT INFORMATION
  Report Type: Spontaneous
  Country: US (occurrence: None)
  Receive Date: 20160606
  Receipt Date: 20160606
  Transmission Date: 20160815
  Serious: No
  Sender: FDA-Public Use
  Company Number: None

PATIENT
  Age: 34 Year
  Sex: Male
  Weight: 107.96 kg

DRUGS (2)
  1. ZYRTEC [Concomitant]
     Active Substance: CETIRIZINE HYDROCHLORIDE
  2. ELIDEL [Suspect]
     Active Substance: PIMECROLIMUS
     Indication: ECZEMA
     Dosage: 5 G TWICE A DAY, APPLIED TO A SURFACE, USUALLY THE SKIN
     Route: 061
     Dates: start: 20160429, end: 20160531

REACTIONS (2)
  - Application site burn [None]
  - Application site erythema [None]

NARRATIVE: CASE EVENT DATE: 20160517
